FAERS Safety Report 16882478 (Version 1)
Quarter: 2019Q4

REPORT INFORMATION
  Report Type: Report from Study
  Country: US (occurrence: US)
  Receive Date: 20191003
  Receipt Date: 20191003
  Transmission Date: 20200122
  Serious: Yes (Other)
  Sender: FDA-Public Use
  Company Number: US-JAZZ-2016-US-013128

PATIENT

DRUGS (1)
  1. XYREM [Suspect]
     Active Substance: SODIUM OXYBATE
     Indication: NARCOLEPSY
     Dosage: UNKNOWN DOSE
     Route: 048

REACTIONS (6)
  - Fibromyalgia [Unknown]
  - Monoclonal gammopathy [Unknown]
  - Mental disorder [Unknown]
  - Sleep apnoea syndrome [Unknown]
  - Chronic fatigue syndrome [Unknown]
  - Anaemia macrocytic [Unknown]
